FAERS Safety Report 19546233 (Version 1)
Quarter: 2021Q3

REPORT INFORMATION
  Report Type: Report from Study
  Country: NL (occurrence: NL)
  Receive Date: 20210713
  Receipt Date: 20210713
  Transmission Date: 20211014
  Serious: Yes (Hospitalization, Other)
  Sender: FDA-Public Use
  Company Number: NL-PFIZER INC-2021791656

PATIENT
  Age: 75 Year
  Sex: Female

DRUGS (5)
  1. ATEZOLIZUMAB. [Suspect]
     Active Substance: ATEZOLIZUMAB
     Indication: NON-SMALL CELL LUNG CANCER
     Dosage: 1200 MG
     Route: 042
     Dates: start: 20210602
  2. BEVACIZUMAB. [Suspect]
     Active Substance: BEVACIZUMAB
     Indication: NON-SMALL CELL LUNG CANCER
     Dosage: 1080 MG
     Route: 042
     Dates: start: 20210602, end: 20210602
  3. CARBOPLATIN. [Suspect]
     Active Substance: CARBOPLATIN
     Indication: NON-SMALL CELL LUNG CANCER
     Dosage: 499.2 MG
     Route: 042
     Dates: start: 20210602, end: 20210602
  4. PACLITAXEL. [Suspect]
     Active Substance: PACLITAXEL
     Dosage: 36.8 MG
     Route: 042
     Dates: start: 20210602, end: 20210602
  5. PACLITAXEL. [Suspect]
     Active Substance: PACLITAXEL
     Dosage: 361.8 MG
     Route: 042
     Dates: start: 20210602, end: 20210602

REACTIONS (2)
  - Thrombotic thrombocytopenic purpura [Not Recovered/Not Resolved]
  - Cerebrovascular accident [Not Recovered/Not Resolved]

NARRATIVE: CASE EVENT DATE: 20210611
